FAERS Safety Report 7391538-6 (Version None)
Quarter: 2011Q2

REPORT INFORMATION
  Report Type: 
  Country: None (occurrence: None)
  Receive Date: 20110404
  Receipt Date: 20101014
  Transmission Date: 20111010
  Serious: Yes (Hospitalization, Other)
  Sender: FDA-Public Use
  Company Number: US-BAYER-201023003NA

PATIENT
  Sex: Female
  Weight: 61.224 kg

DRUGS (16)
  1. OCELLA [Suspect]
     Indication: CONTRACEPTION
     Dosage: UNK UNK, QD
     Route: 048
     Dates: start: 20080801, end: 20090701
  2. NSAID'S [Concomitant]
     Dosage: UNK UNK, PRN
  3. YASMIN [Suspect]
     Indication: CONTRACEPTION
     Dosage: UNK UNK, UNK
     Route: 048
     Dates: start: 20040901, end: 20080501
  4. CIPROFLOXACIN HYDROCHLORIDE [Concomitant]
  5. OCELLA [Suspect]
     Indication: PREMENSTRUAL SYNDROME
  6. CYMBALTA [Concomitant]
     Indication: ANXIETY
  7. OMEPRAZOLE [Concomitant]
     Indication: GASTROOESOPHAGEAL REFLUX DISEASE
     Dosage: UNK
     Dates: start: 20070101
  8. DICYCLOMINE [Concomitant]
     Indication: DIARRHOEA
     Dosage: 10 MG, QD
  9. PRILOSEC [Concomitant]
  10. CYCLESSA [Concomitant]
     Dosage: UNK
     Dates: start: 20040101
  11. LOESTRIN FE 1/20 [Concomitant]
     Dosage: UNK
     Dates: start: 20090101
  12. YASMIN [Suspect]
     Indication: PREMENSTRUAL SYNDROME
  13. FEXOFENADINE HCL [Concomitant]
  14. METOPROLOL [Concomitant]
     Indication: HYPERTENSION
     Dosage: 100 MG, QD
     Dates: start: 20050101
  15. CYMBALTA [Concomitant]
     Indication: DEPRESSION
     Dosage: UNK
     Dates: start: 20040101, end: 20100401
  16. ALLEGRA [Concomitant]

REACTIONS (5)
  - CHOLECYSTITIS CHRONIC [None]
  - GALLBLADDER DISORDER [None]
  - DEPRESSION [None]
  - ANXIETY [None]
  - GALLBLADDER CHOLESTEROLOSIS [None]
